FAERS Safety Report 8955094 (Version 1)
Quarter: 2012Q4

REPORT INFORMATION
  Report Type: 
  Country: NL (occurrence: NL)
  Receive Date: 20121207
  Receipt Date: 20121207
  Transmission Date: 20130627
  Serious: Yes (Other)
  Sender: FDA-Public Use
  Company Number: NL-ABBOTT-12P-114-0994749-00

PATIENT
  Age: 8 Year
  Sex: Male

DRUGS (1)
  1. DEPAKINE [Suspect]
     Indication: EPILEPSY
     Route: 048
     Dates: start: 20110913, end: 20111229

REACTIONS (2)
  - Epilepsy [Recovered/Resolved with Sequelae]
  - Poor quality sleep [Recovered/Resolved]
